FAERS Safety Report 22628478 (Version 1)
Quarter: 2023Q2

REPORT INFORMATION
  Report Type: Spontaneous
  Country: US (occurrence: US)
  Receive Date: 20230622
  Receipt Date: 20230622
  Transmission Date: 20230722
  Serious: Yes (Hospitalization)
  Sender: FDA-Public Use
  Company Number: US-MYLANLABS-2023M1065321

PATIENT
  Age: 45 Year
  Sex: Male

DRUGS (13)
  1. DOXORUBICIN [Suspect]
     Active Substance: DOXORUBICIN
     Indication: Burkitt^s lymphoma stage IV
     Dosage: UNK, CYCLE, 4 CYCLES OF R-CODOX-M/R-IVAC REGIMEN FOLLOWED BY DOSE ADJUSTED R-EPOCH REGIMEN
     Route: 065
  2. DOXORUBICIN [Suspect]
     Active Substance: DOXORUBICIN
     Dosage: UNK, CYCLE, DOSE ADJUSTED R-EPOCH REGIMEN
     Route: 065
  3. METHOTREXATE [Suspect]
     Active Substance: METHOTREXATE
     Indication: Burkitt^s lymphoma stage IV
     Dosage: UNK, CYCLE,4 CYCLES OF R-CODOX-M/R-IVAC REGIMEN
     Route: 065
  4. IFOSFAMIDE [Suspect]
     Active Substance: IFOSFAMIDE
     Indication: Burkitt^s lymphoma stage IV
     Dosage: UNK, CYCLE, 4 CYCLES OF R-CODOX-M/R-IVAC REGIMEN
     Route: 065
  5. ETOPOSIDE [Suspect]
     Active Substance: ETOPOSIDE
     Indication: Burkitt^s lymphoma stage IV
     Dosage: UNK, CYCLE, 4 CYCLES OF R-CODOX-M/R-IVAC REGIMEN FOLLOWED BY DOSE ADJUSTED R-EPOCH REGIMEN
     Route: 065
  6. ETOPOSIDE [Suspect]
     Active Substance: ETOPOSIDE
     Dosage: UNK, CYCLE, DOSE ADJUSTED R-EPOCH REGIMEN
     Route: 065
  7. CYTARABINE [Suspect]
     Active Substance: CYTARABINE
     Indication: Burkitt^s lymphoma stage IV
     Dosage: UNK, CYCLE,4 CYCLES OF R-CODOX-M/R-IVAC REGIMEN
     Route: 065
  8. RITUXIMAB [Suspect]
     Active Substance: RITUXIMAB
     Indication: Burkitt^s lymphoma stage IV
     Dosage: UNK, CYCLE,4 CYCLES OF R-CODOX-M/R-IVAC REGIMEN FOLLOWED BY DOSE ADJUSTED R-EPOCH REGIMEN
     Route: 065
  9. RITUXIMAB [Suspect]
     Active Substance: RITUXIMAB
     Dosage: UNK, CYCLE, DOSE ADJUSTED R-EPOCH REGIMEN
     Route: 065
  10. CYCLOPHOSPHAMIDE [Suspect]
     Active Substance: CYCLOPHOSPHAMIDE
     Indication: Burkitt^s lymphoma stage IV
     Dosage: UNK, CYCLE,4 CYCLES OF R-CODOX-M/R-IVAC REGIMEN FOLLOWED BY DOSE ADJUSTED R-EPOCH REGIMEN
     Route: 065
  11. CYCLOPHOSPHAMIDE [Suspect]
     Active Substance: CYCLOPHOSPHAMIDE
     Dosage: UNK, CYCLE, DOSE ADJUSTED R-EPOCH REGIMEN
     Route: 065
  12. VINCRISTINE [Suspect]
     Active Substance: VINCRISTINE
     Indication: Burkitt^s lymphoma stage IV
     Dosage: UNK, CYCLE,4 CYCLES OF R-CODOX-M/R-IVAC REGIMEN FOLLOWED BY DOSE ADJUSTED R-EPOCH REGIMEN
     Route: 065
  13. VINCRISTINE [Suspect]
     Active Substance: VINCRISTINE
     Dosage: UNK, CYCLE, DOSE ADJUSTED R-EPOCH REGIMEN
     Route: 065

REACTIONS (2)
  - Disease progression [Recovered/Resolved]
  - Drug ineffective [Unknown]
